FAERS Safety Report 7179046-9 (Version None)
Quarter: 2010Q4

REPORT INFORMATION
  Report Type: 
  Country: None (occurrence: None)
  Receive Date: 20101221
  Receipt Date: 20101217
  Transmission Date: 20110411
  Serious: Yes (Death)
  Sender: FDA-Public Use
  Company Number: PHHY2010CA53006

PATIENT
  Sex: Female

DRUGS (5)
  1. CLOZARIL [Suspect]
     Dosage: 475 MG/DAILY
     Route: 048
     Dates: start: 20071010, end: 20100711
  2. CLOPIXOL [Concomitant]
     Dosage: 150 MG, BIW
  3. DOCUSATE SODIUM [Concomitant]
     Dosage: 200 MG, BID
  4. LACTULOSE [Concomitant]
     Dosage: 30 MG, BID
  5. PROCYCLIDINE HYDROCHLORIDE 2MG TAB [Concomitant]
     Dosage: 15 MG , DAILY

REACTIONS (1)
  - DEATH [None]
